FAERS Safety Report 8771915 (Version 3)
Quarter: 2012Q4

REPORT INFORMATION
  Report Type: Report from Study
  Country: JP (occurrence: JP)
  Receive Date: 20120905
  Receipt Date: 20121009
  Transmission Date: 20130627
  Serious: Yes (Hospitalization)
  Sender: FDA-Public Use
  Company Number: JP-ROCHE-1114667

PATIENT
  Age: 72 Year
  Sex: Male

DRUGS (12)
  1. ROACTEMRA [Suspect]
     Indication: RHEUMATOID ARTHRITIS
     Route: 041
     Dates: start: 20090704
  2. ROACTEMRA [Suspect]
     Indication: RHEUMATOID ARTHRITIS
     Route: 041
     Dates: start: 20100215, end: 20100925
  3. ROACTEMRA [Suspect]
     Indication: RHEUMATOID ARTHRITIS
     Route: 041
     Dates: start: 20101218, end: 20120409
  4. RHEUMATREX [Suspect]
     Indication: RHEUMATOID ARTHRITIS
     Route: 048
     Dates: start: 20070323, end: 20070406
  5. RHEUMATREX [Suspect]
     Route: 048
     Dates: start: 20070407, end: 20071129
  6. RHEUMATREX [Suspect]
     Route: 048
     Dates: start: 20080526, end: 20120409
  7. PROGRAF [Suspect]
     Indication: RHEUMATOID ARTHRITIS
     Dosage: Dosage is uncertain.
     Route: 048
     Dates: start: 20120214, end: 20120409
  8. AZULFIDINE-EN [Concomitant]
     Indication: RHEUMATOID ARTHRITIS
     Route: 048
     Dates: start: 20070208, end: 20091222
  9. PREDONINE [Concomitant]
     Indication: RHEUMATOID ARTHRITIS
     Route: 048
     Dates: start: 20070208, end: 20090810
  10. MINODRONIC ACID [Concomitant]
     Indication: OSTEOPOROSIS
     Route: 048
     Dates: start: 20120114, end: 20120409
  11. LIVALO [Concomitant]
     Indication: HYPERCHOLESTEROLAEMIA
     Route: 048
     Dates: start: 20111101, end: 20120409
  12. ZETIA [Concomitant]
     Dosage: Dosage is uncertain.
     Route: 048

REACTIONS (4)
  - Pneumonia [Recovering/Resolving]
  - Rectal cancer [Not Recovered/Not Resolved]
  - Diarrhoea [Recovering/Resolving]
  - Cerebral infarction [Unknown]
